FAERS Safety Report 5086092-8 (Version None)
Quarter: 2006Q3

REPORT INFORMATION
  Report Type: 
  Country: None (occurrence: None)
  Receive Date: 20060818
  Receipt Date: 20060810
  Transmission Date: 20061208
  Serious: Yes (Hospitalization)
  Sender: FDA-Public Use
  Company Number: 06H-028-0309546-00

PATIENT
  Age: 45 Year
  Sex: Female
  Weight: 46 kg

DRUGS (2)
  1. MARCAINE SPINAL INJECTION (BUPIVACAINE/DEXTROSE) [Suspect]
     Indication: SPINAL ANAESTHESIA
     Dosage: 1 MG, SUBARACHNOID
     Dates: start: 20060801
  2. FENTANYL [Concomitant]

REACTIONS (1)
  - HEMIPLEGIA [None]
